FAERS Safety Report 23984214 (Version 1)
Quarter: 2024Q2

REPORT INFORMATION
  Report Type: Report from Study
  Country: CA (occurrence: CA)
  Receive Date: 20240618
  Receipt Date: 20240618
  Transmission Date: 20240716
  Serious: Yes (Death)
  Sender: FDA-Public Use
  Company Number: CA-AMGEN-CANSL2023161568

PATIENT
  Age: 76 Year
  Sex: Male

DRUGS (2)
  1. AVSOLA [Suspect]
     Active Substance: INFLIXIMAB-AXXQ
     Indication: Crohn^s disease
     Dosage: 700 MILLIGRAM, Q6WK
     Route: 042
     Dates: start: 20220307
  2. AVSOLA [Suspect]
     Active Substance: INFLIXIMAB-AXXQ
     Dosage: 700 MILLIGRAM, Q6WK
     Route: 042
     Dates: end: 20240401

REACTIONS (2)
  - Lung cancer metastatic [Fatal]
  - Off label use [Unknown]

NARRATIVE: CASE EVENT DATE: 20220307
